FAERS Safety Report 12720704 (Version 2)
Quarter: 2016Q3

REPORT INFORMATION
  Report Type: Spontaneous
  Country: CH (occurrence: CH)
  Receive Date: 20160907
  Receipt Date: 20160929
  Transmission Date: 20161109
  Serious: Yes (Hospitalization, Other)
  Sender: FDA-Public Use
  Company Number: CH-PFIZER INC-2016420777

PATIENT
  Sex: Female
  Weight: 1.2 kg

DRUGS (5)
  1. ASPIRIN CARDIO [Concomitant]
     Active Substance: ASPIRIN
     Indication: PROPHYLAXIS
     Dosage: UNK
     Route: 064
     Dates: start: 201602, end: 20160530
  2. INSULIN [Concomitant]
     Active Substance: INSULIN NOS
     Indication: GESTATIONAL DIABETES
     Dosage: UNK
     Route: 064
     Dates: end: 20160530
  3. ATENOLOL. [Suspect]
     Active Substance: ATENOLOL
     Indication: ESSENTIAL HYPERTENSION
     Dosage: UNK
     Route: 064
  4. CELESTONE [Concomitant]
     Active Substance: BETAMETHASONE
     Indication: NEONATAL RESPIRATORY DISTRESS SYNDROME PROPHYLAXIS
     Dosage: UNK
     Route: 064
     Dates: start: 20160518, end: 20160519
  5. DIAMOX SEQUELS [Suspect]
     Active Substance: ACETAZOLAMIDE
     Indication: INTRACRANIAL PRESSURE INCREASED
     Dosage: UNK
     Route: 064
     Dates: end: 20151223

REACTIONS (11)
  - Infantile apnoea [Unknown]
  - Small size placenta [Recovered/Resolved]
  - Premature baby [Unknown]
  - Ultrasound Doppler abnormal [Unknown]
  - Foetal hypokinesia [Unknown]
  - Neonatal respiratory distress syndrome [Recovered/Resolved]
  - Nonreassuring foetal heart rate pattern [Recovered/Resolved]
  - Foetal monitoring abnormal [Unknown]
  - Maternal exposure during pregnancy [Unknown]
  - Bradycardia neonatal [Recovered/Resolved]
  - Hypophosphataemia [Recovered/Resolved]

NARRATIVE: CASE EVENT DATE: 20160530
